FAERS Safety Report 7285509-8 (Version None)
Quarter: 2011Q1

REPORT INFORMATION
  Report Type: 
  Country: None (occurrence: None)
  Receive Date: 20110210
  Receipt Date: 20110202
  Transmission Date: 20110831
  Serious: Yes (Death)
  Sender: FDA-Public Use
  Company Number: HR-SHIRE-SPV1-2011-00193

PATIENT
  Age: 13 Year
  Sex: Male

DRUGS (1)
  1. IDURSULFASE [Suspect]
     Indication: MUCOPOLYSACCHARIDOSIS II
     Dosage: 2 UNK, 1X/WEEK
     Route: 041
     Dates: start: 20070101, end: 20100501

REACTIONS (1)
  - DEATH [None]
